FAERS Safety Report 9870131 (Version 1)
Quarter: 2014Q1

REPORT INFORMATION
  Report Type: Spontaneous
  Country: CA (occurrence: None)
  Receive Date: 20140131
  Receipt Date: 20140131
  Transmission Date: 20141002
  Serious: Yes (Congenital Anomaly, Other)
  Sender: FDA-Public Use
  Company Number: 2014018412

PATIENT
  Sex: 0

DRUGS (1)
  1. FRAGMIN [Suspect]
     Route: 064
     Dates: start: 2013

REACTIONS (2)
  - Maternal drugs affecting foetus [None]
  - Renal fusion anomaly [None]
